FAERS Safety Report 8298879-9 (Version None)
Quarter: 2012Q2

REPORT INFORMATION
  Report Type: 
  Country: None (occurrence: None)
  Receive Date: 20120419
  Receipt Date: 20120406
  Transmission Date: 20120825
  Serious: Yes (Death)
  Sender: FDA-Public Use
  Company Number: IT-CELGENEUS-083-21880-12011044

PATIENT
  Sex: Male

DRUGS (10)
  1. PREDNISONE TAB [Concomitant]
     Indication: MYELOMA RECURRENCE
     Route: 065
     Dates: start: 20100822
  2. PROSTIDE [Concomitant]
     Indication: BENIGN PROSTATIC HYPERPLASIA
     Route: 065
  3. RED BLOOD CELLS [Concomitant]
     Dosage: 1 DOSAGE FORMS
     Route: 041
  4. TAMSULOSIN HYDROCHLORIDE [Concomitant]
     Indication: BENIGN PROSTATIC HYPERPLASIA
     Route: 065
  5. MOBIC [Concomitant]
     Route: 065
  6. REVLIMID [Suspect]
     Indication: MYELOMA RECURRENCE
     Route: 048
     Dates: start: 20100822
  7. REVLIMID [Suspect]
     Dosage: 10 MILLIGRAM
     Route: 048
     Dates: start: 20110412, end: 20110502
  8. WHOLE BLOOD [Concomitant]
     Route: 041
  9. ALLOPURINOL [Concomitant]
     Route: 065
  10. RED BLOOD CELLS [Concomitant]
     Dosage: 1 DOSAGE FORMS
     Route: 041
     Dates: start: 20110329, end: 20110329

REACTIONS (1)
  - MULTIPLE MYELOMA [None]
